FAERS Safety Report 7460858-9 (Version None)
Quarter: 2011Q2

REPORT INFORMATION
  Report Type: 
  Country: None (occurrence: None)
  Receive Date: 20110505
  Receipt Date: 20110502
  Transmission Date: 20111010
  Serious: Yes (Hospitalization, Other)
  Sender: FDA-Public Use
  Company Number: US-PFIZER INC-2011020805

PATIENT
  Sex: Male

DRUGS (27)
  1. ZITHROMAX [Concomitant]
     Indication: ANTIBIOTIC THERAPY
     Dosage: UNK
     Dates: start: 20050101, end: 20090101
  2. PROZAC [Concomitant]
     Indication: ANXIETY
     Dosage: UNK
     Dates: start: 20060101, end: 20090101
  3. VITAMIN E [Concomitant]
     Dosage: UNK
     Dates: start: 20070101, end: 20090101
  4. ACETYLSALICYLIC ACID [Concomitant]
     Indication: PAIN
     Dosage: UNK
  5. IBUPROFEN [Concomitant]
     Indication: PAIN
     Dosage: UNK
  6. PROZAC [Concomitant]
     Indication: DEPRESSION
  7. PRAVASTATIN [Concomitant]
     Indication: BLOOD CHOLESTEROL INCREASED
     Dosage: UNK
     Dates: start: 20060101
  8. TORADOL [Concomitant]
     Indication: PAIN
     Dosage: UNK
     Dates: start: 20050101, end: 20100101
  9. BACTRIM [Concomitant]
     Indication: ANTIBIOTIC THERAPY
     Dosage: UNK
     Dates: start: 20060101, end: 20100101
  10. ATENOLOL [Concomitant]
     Indication: HYPERTENSION
     Dosage: UNK
     Dates: start: 20060101
  11. ROXICET [Concomitant]
     Indication: PAIN
     Dosage: UNK
     Dates: start: 20000101, end: 20090101
  12. ACETAMINOPHEN AND HYDROCODONE BITARTRATE [Concomitant]
     Indication: PAIN
     Dosage: UNK
     Dates: start: 20020101, end: 20100101
  13. ADVAIR DISKUS 100/50 [Concomitant]
     Indication: DYSPNOEA
     Dosage: UNK
     Dates: start: 20050101, end: 20090101
  14. PERCOCET [Concomitant]
     Indication: PAIN
     Dosage: UNK
     Dates: start: 20000101, end: 20090101
  15. AMBIEN [Concomitant]
     Dosage: UNK
     Dates: start: 20050101, end: 20090101
  16. PROTONIX [Concomitant]
     Indication: GASTROOESOPHAGEAL REFLUX DISEASE
     Dosage: UNK
     Dates: start: 20050101
  17. HYDROCHLOROTHIAZIDE [Concomitant]
     Indication: HYPERTENSION
     Dosage: UNK
     Dates: start: 20060101
  18. VITAMIN B COMPLEX CAP [Concomitant]
     Dosage: UNK
     Dates: start: 20070101, end: 20090101
  19. VIAGRA [Concomitant]
     Indication: ERECTILE DYSFUNCTION
     Dosage: UNK
     Dates: start: 20000101, end: 20090101
  20. OXYCONTIN [Concomitant]
     Indication: PAIN
     Dosage: UNK
     Dates: start: 20000101, end: 20090101
  21. AMOXICILLIN AND CLAVULANATE POTASSIUM [Concomitant]
     Indication: ANTIBIOTIC THERAPY
     Dosage: UNK
     Dates: start: 20040101, end: 20100101
  22. METHADONE [Concomitant]
     Indication: PAIN
     Dosage: UNK
     Dates: start: 20060101
  23. LOPID [Concomitant]
     Indication: BLOOD CHOLESTEROL INCREASED
     Dosage: UNK
     Dates: start: 20060101
  24. ATIVAN [Concomitant]
     Indication: ANXIETY
     Dosage: UNK
     Dates: start: 20070101
  25. MILK THISTLE [Concomitant]
     Indication: PHYTOTHERAPY
     Dosage: UNK
     Dates: start: 20070101
  26. CHANTIX [Suspect]
     Indication: SMOKING CESSATION THERAPY
     Dosage: STARTER PACK AND CONTINUING MONTH PACK
     Dates: start: 20080506, end: 20080701
  27. VITAMIN C [Concomitant]
     Dosage: UNK
     Dates: start: 20070101, end: 20090101

REACTIONS (8)
  - LOSS OF CONSCIOUSNESS [None]
  - BIPOLAR DISORDER [None]
  - HYPERVENTILATION [None]
  - SUICIDE ATTEMPT [None]
  - DEPRESSION [None]
  - AMNESIA [None]
  - PARANOIA [None]
  - ANXIETY [None]
